FAERS Safety Report 17584039 (Version 2)
Quarter: 2021Q4

REPORT INFORMATION
  Report Type: Spontaneous
  Country: US (occurrence: US)
  Receive Date: 20200326
  Receipt Date: 20211206
  Transmission Date: 20220303
  Serious: Yes (Life-Threatening, Hospitalization, Other)
  Sender: FDA-Public Use
  Company Number: US-NOVOPROD-718596

PATIENT
  Age: 45 Year
  Sex: Female

DRUGS (4)
  1. VAGIFEM [Suspect]
     Active Substance: ESTRADIOL
     Indication: In vitro fertilisation
     Dosage: TOTAL STIMULATION TIME WAS 3 WEEKS OF UNOPPOSED ESTRADIOL
     Route: 067
  2. ESTRADIOL [Suspect]
     Active Substance: ESTRADIOL
     Indication: In vitro fertilisation
     Dosage: TOTAL STIMULATION TIME WAS 3 WEEKS OF UNOPPOSED ESTRADIOL
     Route: 048
  3. LEUPROLIDE ACETATE [Suspect]
     Active Substance: LEUPROLIDE ACETATE
     Indication: Hormone suppression therapy
     Dosage: DURATION OF ADMINISTRATION: 3 WEEKS
     Route: 065
  4. PROGESTERONE [Suspect]
     Active Substance: PROGESTERONE
     Indication: In vitro fertilisation
     Dosage: INTRAMUSCULAR PROGESTERONE IN OIL
     Route: 030

REACTIONS (2)
  - Endometrial stromal sarcoma [Unknown]
  - Off label use [Unknown]
